FAERS Safety Report 25293301 (Version 2)
Quarter: 2025Q2

REPORT INFORMATION
  Report Type: Spontaneous
  Country: US (occurrence: US)
  Receive Date: 20250510
  Receipt Date: 20250612
  Transmission Date: 20250717
  Serious: No
  Sender: SANOFI AVENTIS
  Company Number: US-SA-2025SA128608

PATIENT
  Age: 79 Year
  Sex: Male
  Weight: 77.27 kg

DRUGS (10)
  1. DUPIXENT [Suspect]
     Active Substance: DUPILUMAB
     Indication: Dermatitis atopic
     Dosage: 300 MG, QOW
     Route: 058
     Dates: start: 20250103, end: 2025
  2. TACROLIMUS [Concomitant]
     Active Substance: TACROLIMUS
  3. TRIAMCINOLONE ACETONIDE [Concomitant]
     Active Substance: TRIAMCINOLONE ACETONIDE
  4. METHYLPREDNISOLONE [Concomitant]
     Active Substance: METHYLPREDNISOLONE
  5. RINVOQ [Concomitant]
     Active Substance: UPADACITINIB
  6. METFORMIN [Concomitant]
     Active Substance: METFORMIN HYDROCHLORIDE
  7. ROSUVASTATIN CALCIUM [Concomitant]
     Active Substance: ROSUVASTATIN CALCIUM
  8. MIRABEGRON [Concomitant]
     Active Substance: MIRABEGRON
  9. TAMSULOSIN [Concomitant]
     Active Substance: TAMSULOSIN
  10. RYBELSUS [Concomitant]
     Active Substance: SEMAGLUTIDE

REACTIONS (3)
  - Skin discolouration [Not Recovered/Not Resolved]
  - Rash pruritic [Not Recovered/Not Resolved]
  - Drug ineffective [Not Recovered/Not Resolved]

NARRATIVE: CASE EVENT DATE: 20250101
